APPROVED DRUG PRODUCT: THEOPHYLLINE
Active Ingredient: THEOPHYLLINE
Strength: 80MG/15ML
Dosage Form/Route: SOLUTION;ORAL
Application: A091586 | Product #001 | TE Code: AA
Applicant: TRIS PHARMA INC
Approved: Jun 15, 2012 | RLD: No | RS: No | Type: RX